FAERS Safety Report 11055009 (Version 1)
Quarter: 2015Q2

REPORT INFORMATION
  Report Type: Spontaneous
  Country: US (occurrence: US)
  Receive Date: 20150422
  Receipt Date: 20150422
  Transmission Date: 20150821
  Serious: No
  Sender: FDA-Public Use
  Company Number: US-SA-2014SA069651

PATIENT
  Age: 71 Year
  Sex: Female

DRUGS (5)
  1. ENOXAPARIN SODIUM - WINTHROP [Suspect]
     Active Substance: ENOXAPARIN SODIUM
     Indication: PNEUMOTHORAX
     Route: 065
     Dates: start: 201405
  2. WARFARIN [Concomitant]
     Active Substance: WARFARIN
  3. WARFARIN [Concomitant]
     Active Substance: WARFARIN
  4. WARFARIN [Concomitant]
     Active Substance: WARFARIN
  5. WARFARIN [Concomitant]
     Active Substance: WARFARIN

REACTIONS (1)
  - Abdominal pain [Not Recovered/Not Resolved]

NARRATIVE: CASE EVENT DATE: 201405
